FAERS Safety Report 7043679-0 (Version None)
Quarter: 2010Q4

REPORT INFORMATION
  Report Type: 
  Country: None (occurrence: None)
  Receive Date: 20101013
  Receipt Date: 20091009
  Transmission Date: 20110411
  Serious: No
  Sender: FDA-Public Use
  Company Number: US-MYLANLABS-2009S1017868

PATIENT
  Age: 76 Year
  Sex: Female

DRUGS (3)
  1. CARBIDOPA AND LEVODOPA EXTENDED-RELEASE TABLETS [Suspect]
     Indication: PARKINSON'S DISEASE
     Dates: start: 20090101
  2. ASPIRIN [Concomitant]
  3. TYLENOL [Concomitant]

REACTIONS (3)
  - DRUG EFFECT DECREASED [None]
  - GAIT DISTURBANCE [None]
  - UNEVALUABLE EVENT [None]
